APPROVED DRUG PRODUCT: ALLEGRA ALLERGY
Active Ingredient: FEXOFENADINE HYDROCHLORIDE
Strength: 180MG
Dosage Form/Route: TABLET;ORAL
Application: N020872 | Product #010
Applicant: CHATTEM INC DBA SANOFI CONSUMER HEALTHCARE
Approved: Jan 24, 2011 | RLD: Yes | RS: Yes | Type: OTC